FAERS Safety Report 8172085 (Version 6)
Quarter: 2014Q1

REPORT INFORMATION
  Report Type: Spontaneous
  Country: GB (occurrence: None)
  Receive Date: 20110923
  Receipt Date: 20140114
  Transmission Date: 20141002
  Serious: Yes (Life-Threatening, Hospitalization, Disabling, Other)
  Sender: FDA-Public Use
  Company Number: 2011AP001977

PATIENT
  Age: 27 Year
  Sex: Female

DRUGS (24)
  1. QUETIAPINE FUMARATE [Suspect]
     Indication: PSYCHOTIC DISORDER
     Route: 048
     Dates: start: 20110224, end: 20110506
  2. OMEPRAZOLE [Suspect]
     Indication: DYSPEPSIA
     Dates: start: 20110525
  3. PAROXETINE [Suspect]
     Indication: DEPRESSION
     Route: 048
     Dates: start: 19990801, end: 20110706
  4. PAROXETINE [Suspect]
     Indication: POST-TRAUMATIC STRESS DISORDER
     Route: 048
     Dates: start: 19990801, end: 20110706
  5. CLONAZEPAM [Suspect]
     Indication: SEDATION
     Route: 048
     Dates: start: 20110224, end: 20110410
  6. MIRTAZAPINE [Suspect]
     Indication: DEPRESSION
     Route: 048
     Dates: start: 20100923, end: 20101108
  7. DIAZEPAM [Suspect]
     Indication: MUSCLE SPASMS
     Dates: start: 20110725
  8. DIAZEPAM [Suspect]
     Indication: SEROTONIN SYNDROME
     Dates: start: 20110725
  9. PROCYCLIDINE [Suspect]
     Indication: EXTRAPYRAMIDAL DISORDER
     Dosage: 5 MG;TID
     Route: 048
     Dates: start: 20110503, end: 20110510
  10. PROCYCLIDINE [Suspect]
     Indication: OCULOGYRIC CRISIS
     Dosage: 5 MG;TID
     Route: 048
     Dates: start: 20110503, end: 20110510
  11. SEROXAT [Suspect]
     Indication: PRODUCT USED FOR UNKNOWN INDICATION
     Route: 048
     Dates: start: 19990801, end: 20110706
  12. SEROXAT [Suspect]
     Indication: DEPRESSION
     Route: 048
     Dates: start: 19990801, end: 20110706
  13. TRAMADOL HYDROCHLORIDE [Suspect]
     Indication: NECK PAIN
     Route: 048
     Dates: start: 20081201, end: 20101210
  14. TRAMADOL HYDROCHLORIDE [Suspect]
     Indication: ANALGESIC THERAPY
     Route: 048
     Dates: start: 20081201, end: 20101210
  15. TRAMADOL HYDROCHLORIDE [Suspect]
     Indication: BACK PAIN
     Route: 048
     Dates: start: 20081201, end: 20101210
  16. LORAZEPAM [Suspect]
     Indication: SEDATION
     Dosage: 1 MG;PO
     Route: 048
     Dates: start: 20110224, end: 20110627
  17. AMITRIPTYLINE [Suspect]
     Indication: MUSCLE SPASMS
     Dosage: 25 MG;QD
     Dates: start: 20110810
  18. AMITRIPTYLINE [Suspect]
     Indication: SEROTONIN SYNDROME
     Dosage: 25 MG;QD
     Dates: start: 20110810
  19. AMITRIPTYLINE [Suspect]
     Indication: NEURALGIA
     Dosage: 25 MG;QD
     Dates: start: 20110810
  20. CODEINE [Suspect]
     Indication: ANALGESIC THERAPY
     Dosage: PO
     Route: 048
     Dates: start: 20110615, end: 20110723
  21. CODEINE [Suspect]
     Indication: SEROTONIN SYNDROME
     Dosage: PO
     Route: 048
     Dates: start: 20110615, end: 20110723
  22. DOMPERIDONE [Suspect]
  23. DOMPERIDONE [Suspect]
  24. DIAZEPAM (DIAZEPAM) [Concomitant]

REACTIONS (101)
  - Agitation [None]
  - Anxiety [None]
  - Decreased appetite [None]
  - Hallucinations, mixed [None]
  - Blood sodium decreased [None]
  - Cyanosis [None]
  - Vision blurred [None]
  - Cogwheel rigidity [None]
  - Contusion [None]
  - Convulsion [None]
  - Delirium [None]
  - Depression [None]
  - Dissociation [None]
  - Diarrhoea [None]
  - Dyspnoea [None]
  - Disorientation [None]
  - Dizziness [None]
  - Drooling [None]
  - Maternal exposure during pregnancy [None]
  - Pregnancy [None]
  - Drug interaction [None]
  - Toxicity to various agents [None]
  - Dyskinesia [None]
  - Tinnitus [None]
  - Emotional disorder [None]
  - Swelling face [None]
  - Feeling of despair [None]
  - Derealisation [None]
  - Pyrexia [None]
  - Gastric pH decreased [None]
  - Headache [None]
  - Incontinence [None]
  - Feeling jittery [None]
  - Arthralgia [None]
  - Limb injury [None]
  - Sensory loss [None]
  - Mania [None]
  - Menstrual disorder [None]
  - Disturbance in attention [None]
  - Mood swings [None]
  - Muscle disorder [None]
  - Muscle spasms [None]
  - Premature delivery [None]
  - Hypoaesthesia [None]
  - Eye pain [None]
  - Paraesthesia [None]
  - Premature labour [None]
  - Pruritus [None]
  - Psychotic disorder [None]
  - Mydriasis [None]
  - Restlessness [None]
  - Serotonin syndrome [None]
  - Schizophrenia [None]
  - Malaise [None]
  - Skin discolouration [None]
  - Sleep disorder [None]
  - Aphasia [None]
  - Parosmia [None]
  - Suicidal ideation [None]
  - Hyperhidrosis [None]
  - H1N1 influenza [None]
  - Tremor [None]
  - Balance disorder [None]
  - Urinary retention [None]
  - Visual impairment [None]
  - Vomiting [None]
  - Gait disturbance [None]
  - Asthenia [None]
  - Speech disorder [None]
  - Feeling of body temperature change [None]
  - Musculoskeletal stiffness [None]
  - Pallor [None]
  - Paralysis [None]
  - Swollen tongue [None]
  - Tachycardia [None]
  - Hypoaesthesia oral [None]
  - Condition aggravated [None]
  - Nervous system disorder [None]
  - Somnolence [None]
  - No therapeutic response [None]
  - Dyspepsia [None]
  - Neuralgia [None]
  - Unevaluable event [None]
  - Hypotonia [None]
  - Fatigue [None]
  - Road traffic accident [None]
  - Neck pain [None]
  - Back pain [None]
  - Myalgia [None]
  - Confusional state [None]
  - Hypersomnia [None]
  - Irritability [None]
  - Depersonalisation [None]
  - Neuroleptic malignant syndrome [None]
  - Nightmare [None]
  - Hypoaesthesia oral [None]
  - Drug withdrawal syndrome [None]
  - Dystonia [None]
  - Depression [None]
  - Psychotic disorder [None]
  - Extrapyramidal disorder [None]
